FAERS Safety Report 4645951-8 (Version None)
Quarter: 2005Q2

REPORT INFORMATION
  Report Type: 
  Country: None (occurrence: None)
  Receive Date: 20050425
  Receipt Date: 20050412
  Transmission Date: 20051028
  Serious: Yes (Other)
  Sender: FDA-Public Use
  Company Number: 2005057346

PATIENT
  Age: 17 Year
  Sex: Female
  Weight: 88.4514 kg

DRUGS (2)
  1. BEXTRA [Suspect]
     Indication: INTERVERTEBRAL DISC PROTRUSION
     Dosage: ORAL
     Route: 048
     Dates: start: 20040301
  2. ULTRACET [Concomitant]

REACTIONS (3)
  - ACNE [None]
  - DRUG EFFECT DECREASED [None]
  - POST PROCEDURAL DISCOMFORT [None]
